FAERS Safety Report 16662201 (Version 1)
Quarter: 2019Q3

REPORT INFORMATION
  Report Type: Report from Study
  Country: US (occurrence: US)
  Receive Date: 20190802
  Receipt Date: 20190802
  Transmission Date: 20191004
  Serious: No
  Sender: FDA-Public Use
  Company Number: US-EXELIXIS-CABO-18017966

PATIENT
  Age: 37 Year
  Sex: Male

DRUGS (2)
  1. CABOMETYX [Suspect]
     Active Substance: CABOZANTINIB S-MALATE
     Indication: ADRENAL GLAND CANCER
     Dosage: 60 MG, UNK (EARLY AM AROUND 2 OR 3 A.M. W/O FOOD)
     Dates: start: 20181207
  2. METOPIRONE [Concomitant]
     Active Substance: METYRAPONE

REACTIONS (5)
  - Cortisol increased [Unknown]
  - Weight decreased [Unknown]
  - Hepatic enzyme increased [Unknown]
  - Asthenia [Unknown]
  - Off label use [Unknown]

NARRATIVE: CASE EVENT DATE: 201812
